FAERS Safety Report 18647012 (Version 4)
Quarter: 2021Q1

REPORT INFORMATION
  Report Type: Spontaneous
  Country: RO (occurrence: RO)
  Receive Date: 20201221
  Receipt Date: 20210203
  Transmission Date: 20210419
  Serious: Yes (Hospitalization, Other)
  Sender: FDA-Public Use
  Company Number: RO-AUROBINDO-AUR-APL-2020-062861

PATIENT
  Age: 21 Year
  Sex: Female

DRUGS (6)
  1. DULOXETINE. [Suspect]
     Active Substance: DULOXETINE
     Indication: SCHIZOTYPAL PERSONALITY DISORDER
     Dosage: UNK
     Route: 048
  2. SODIUM VALPROATE [Suspect]
     Active Substance: VALPROATE SODIUM
     Indication: SCHIZOTYPAL PERSONALITY DISORDER
     Dosage: 500 MILLIGRAM, ONCE A DAY
     Route: 065
  3. ALPRAZOLAM. [Suspect]
     Active Substance: ALPRAZOLAM
     Indication: SCHIZOTYPAL PERSONALITY DISORDER
     Dosage: UNK
     Route: 048
  4. RISPERIDONE. [Suspect]
     Active Substance: RISPERIDONE
     Indication: PRODUCT USED FOR UNKNOWN INDICATION
     Dosage: 6 MILLIGRAM, ONCE A DAY
     Route: 065
  5. ARIPIPRAZOLE TABLETS [Suspect]
     Active Substance: ARIPIPRAZOLE
     Indication: SCHIZOTYPAL PERSONALITY DISORDER
     Dosage: UNK
     Route: 048
  6. IMOVANE [Suspect]
     Active Substance: ZOPICLONE
     Indication: PRODUCT USED FOR UNKNOWN INDICATION
     Dosage: 7.5 MILLIGRAM, ONCE A DAY
     Route: 065

REACTIONS (7)
  - Treatment failure [Unknown]
  - Abnormal behaviour [Unknown]
  - Delusion [Unknown]
  - Depression [Unknown]
  - Drug ineffective [Recovered/Resolved]
  - Drug ineffective for unapproved indication [Unknown]
  - Anxiety [Unknown]
